FAERS Safety Report 9870554 (Version 1)
Quarter: 2014Q1

REPORT INFORMATION
  Report Type: Spontaneous
  Country: US (occurrence: US)
  Receive Date: 20140205
  Receipt Date: 20140205
  Transmission Date: 20141002
  Serious: No
  Sender: FDA-Public Use
  Company Number: US-MALLINCKRODT-T201305235

PATIENT
  Age: 59 Year
  Sex: Female

DRUGS (2)
  1. GALLIUM CITRATE GA 67 [Suspect]
     Indication: DIAGNOSTIC PROCEDURE
     Dosage: 1 MCI, SINGLE
     Route: 048
     Dates: start: 20131231, end: 20131231
  2. TECHNETIUM TC 99M SULFUR COLLOID [Suspect]
     Indication: GASTRIC EMPTYING STUDY
     Dosage: NOT USED
     Route: 065

REACTIONS (1)
  - Wrong drug administered [Recovered/Resolved]
